FAERS Safety Report 7631687-8 (Version None)
Quarter: 2011Q3

REPORT INFORMATION
  Report Type: 
  Country: None (occurrence: None)
  Receive Date: 20110725
  Receipt Date: 20110318
  Transmission Date: 20111222
  Serious: Yes (Other)
  Sender: FDA-Public Use
  Company Number: US-BRISTOL-MYERS SQUIBB COMPANY-15556525

PATIENT
  Age: 65 Year
  Sex: Female
  Weight: 70 kg

DRUGS (3)
  1. COUMADIN [Suspect]
     Indication: DEEP VEIN THROMBOSIS
     Dosage: RESTART AT 2MG AND 4MG TABS DURATION:20YRS
  2. COUMADIN [Suspect]
     Indication: PULMONARY EMBOLISM
     Dosage: RESTART AT 2MG AND 4MG TABS DURATION:20YRS
  3. ESTROGENIC SUBSTANCE [Concomitant]

REACTIONS (1)
  - HAEMORRHAGE URINARY TRACT [None]
